FAERS Safety Report 9940354 (Version 1)
Quarter: 2014Q1

REPORT INFORMATION
  Report Type: Report from Study
  Country: CA (occurrence: CA)
  Receive Date: 20140303
  Receipt Date: 20140303
  Transmission Date: 20141002
  Serious: Yes (Other)
  Sender: FDA-Public Use
  Company Number: CA-ABBVIE-14P-028-1205637-00

PATIENT
  Age: 21 Year
  Sex: Female
  Weight: 54.48 kg

DRUGS (2)
  1. HUMIRA [Suspect]
     Indication: CROHN^S DISEASE
     Route: 058
     Dates: start: 20120830, end: 2013
  2. HUMIRA [Suspect]
     Route: 058
     Dates: start: 20140113

REACTIONS (3)
  - Genital pain [Recovered/Resolved]
  - Procedural haemorrhage [Recovered/Resolved]
  - Procedural complication [Recovered/Resolved]
